FAERS Safety Report 6481147-5 (Version None)
Quarter: 2009Q4

REPORT INFORMATION
  Report Type: 
  Country: None (occurrence: None)
  Receive Date: 20091208
  Receipt Date: 20091204
  Transmission Date: 20100525
  Serious: No
  Sender: FDA-Public Use
  Company Number: US-B.I. PHARMACEUTICALS,INC./RIDGEFIELD-2009-BP-14118BP

PATIENT

DRUGS (2)
  1. SPIRIVA [Suspect]
  2. MEDICATION NOT FURTHER SPECIFIED [Concomitant]

REACTIONS (1)
  - GASTRITIS [None]
